FAERS Safety Report 9159574 (Version 1)
Quarter: 2013Q1

REPORT INFORMATION
  Report Type: Spontaneous
  Country: US (occurrence: None)
  Receive Date: 20130312
  Receipt Date: 20130312
  Transmission Date: 20140127
  Serious: Yes (Hospitalization)
  Sender: FDA-Public Use
  Company Number: None

PATIENT
  Age: 46 Year
  Sex: Female

DRUGS (1)
  1. SYEDA [Suspect]
     Dosage: LOT#  LF01687A?EXP. DATE 1/2/2020

REACTIONS (1)
  - Erythema nodosum [None]
